FAERS Safety Report 16580930 (Version 7)
Quarter: 2022Q2

REPORT INFORMATION
  Report Type: Spontaneous
  Country: BR (occurrence: BR)
  Receive Date: 20190716
  Receipt Date: 20220624
  Transmission Date: 20220721
  Serious: Yes (Hospitalization, Other)
  Sender: FDA-Public Use
  Company Number: BR-VIIV HEALTHCARE LIMITED-BR2019AMR117290

PATIENT

DRUGS (8)
  1. DOLUTEGRAVIR [Suspect]
     Active Substance: DOLUTEGRAVIR
     Indication: HIV infection
     Dosage: UNK
     Dates: start: 201902
  2. LAMIVUDINE [Suspect]
     Active Substance: LAMIVUDINE
     Indication: HIV infection
     Dosage: UNK
  3. TENOFOVIR DISOPROXIL FUMARATE [Suspect]
     Active Substance: TENOFOVIR DISOPROXIL FUMARATE
     Indication: Product used for unknown indication
     Dosage: UNK
     Dates: start: 201811
  4. FOLIC ACID [Suspect]
     Active Substance: FOLIC ACID
     Indication: Product used for unknown indication
     Dosage: UNK
  5. PREDNISOLONE [Suspect]
     Active Substance: PREDNISOLONE
     Indication: Product used for unknown indication
     Dosage: UNK
  6. EFAVIRENZ [Suspect]
     Active Substance: EFAVIRENZ
     Indication: Product used for unknown indication
     Dosage: UNK
     Dates: start: 201802
  7. MELOXICAM [Suspect]
     Active Substance: MELOXICAM
     Indication: Product used for unknown indication
     Dosage: UNK
  8. METHOTREXATE [Suspect]
     Active Substance: METHOTREXATE
     Indication: Product used for unknown indication
     Dosage: UNK

REACTIONS (22)
  - Psoriatic arthropathy [Unknown]
  - Neurosyphilis [Unknown]
  - Joint effusion [Unknown]
  - Arthritis infective [Unknown]
  - Colitis microscopic [Unknown]
  - Pericardial effusion [Unknown]
  - Rheumatic disorder [Unknown]
  - Joint swelling [Unknown]
  - Gait disturbance [Unknown]
  - Wound secretion [Unknown]
  - Diarrhoea [Unknown]
  - C-reactive protein [Unknown]
  - CD4 lymphocytes increased [Unknown]
  - Pleural effusion [Unknown]
  - Spinal deformity [Unknown]
  - Back pain [Unknown]
  - Pain [Unknown]
  - Condition aggravated [Unknown]
  - White blood cell disorder [Unknown]
  - Oedema peripheral [Unknown]
  - Malaise [Unknown]
  - Neuritis [Unknown]
